FAERS Safety Report 6024880-1 (Version None)
Quarter: 2008Q4

REPORT INFORMATION
  Report Type: 
  Country: None (occurrence: None)
  Receive Date: 20081231
  Receipt Date: 20081223
  Transmission Date: 20090506
  Serious: Yes (Other)
  Sender: FDA-Public Use
  Company Number: US-PFIZER INC-2008159265

PATIENT
  Sex: Male
  Weight: 82.993 kg

DRUGS (1)
  1. VIAGRA [Suspect]
     Indication: ERECTILE DYSFUNCTION
     Dosage: 100 MG, UNK

REACTIONS (4)
  - DRUG INEFFECTIVE [None]
  - PROSTATE CANCER [None]
  - RHINORRHOEA [None]
  - VISION BLURRED [None]
